FAERS Safety Report 6610157-X (Version None)
Quarter: 2010Q1

REPORT INFORMATION
  Report Type: 
  Country: None (occurrence: None)
  Receive Date: 20100302
  Receipt Date: 20100219
  Transmission Date: 20100710
  Serious: Yes (Other)
  Sender: FDA-Public Use
  Company Number: US-PFIZER INC-2009171940

PATIENT
  Sex: Female

DRUGS (15)
  1. LYRICA [Suspect]
     Indication: PAIN
     Dosage: 100 MG, 3X/DAY
     Route: 048
     Dates: start: 20061001
  2. LYRICA [Suspect]
     Indication: CONVULSION
  3. CELEBREX [Suspect]
     Indication: PAIN
     Dosage: 200 MG, 2X/DAY
  4. DILANTIN-125 [Suspect]
     Indication: PARTIAL SEIZURES
     Dosage: 100 MG, UNK
     Route: 048
  5. IMITREX [Suspect]
     Indication: MIGRAINE
     Dosage: 100 MG, UNK
     Route: 048
     Dates: start: 20030813
  6. DARVOCET [Suspect]
     Indication: PAIN
     Dosage: UNK
     Route: 048
  7. CRESTOR [Suspect]
     Indication: HYPERLIPIDAEMIA
     Dosage: 10 MG, 1X/DAY
     Route: 048
  8. NAMENDA [Concomitant]
  9. ULTRAM [Concomitant]
  10. PREMARIN [Concomitant]
  11. PREMARIN [Concomitant]
  12. INDOMETHACIN [Concomitant]
  13. VITAMIN E [Concomitant]
  14. CALCIUM WITH VITAMIN D [Concomitant]
  15. SLOFENAC - SLOW RELEASE [Concomitant]

REACTIONS (9)
  - ARTHRITIS [None]
  - CARPAL TUNNEL SYNDROME [None]
  - INTERVERTEBRAL DISC PROTRUSION [None]
  - JOINT ARTHROPLASTY [None]
  - OSTEOPOROSIS [None]
  - PAIN [None]
  - PARTIAL SEIZURES [None]
  - SURGERY [None]
  - VISION BLURRED [None]
